FAERS Safety Report 4554692-7 (Version None)
Quarter: 2004Q4

REPORT INFORMATION
  Report Type: 
  Country: None (occurrence: None)
  Receive Date: 20041227
  Receipt Date: 20041011
  Transmission Date: 20050328
  Serious: No
  Sender: FDA-Public Use
  Company Number: US094945

PATIENT
  Age: 47 Year
  Sex: Female

DRUGS (10)
  1. SENSIPAR [Suspect]
     Indication: HYPERPARATHYROIDISM SECONDARY
     Dosage: 30 MG, 1 IN 1 DAYS, PO
     Route: 048
     Dates: start: 20040614
  2. CLARITHROMYCIN [Concomitant]
  3. SEVELAMER HCL [Concomitant]
  4. PHOSLO [Concomitant]
  5. ENALAPRIL MALEATE [Concomitant]
  6. NIFEDIPINE [Concomitant]
  7. CLONIDINE [Concomitant]
  8. NEPHRO-VITE [Concomitant]
  9. NPH INSULIN [Concomitant]
  10. INSULIN [Concomitant]

REACTIONS (1)
  - BLOOD PARATHYROID HORMONE INCREASED [None]
